FAERS Safety Report 8307485 (Version 2)
Quarter: 2013Q4

REPORT INFORMATION
  Report Type: Spontaneous
  Country: US (occurrence: US)
  Receive Date: 20111222
  Receipt Date: 20131209
  Transmission Date: 20140711
  Serious: Yes (Other)
  Sender: FDA-Public Use
  Company Number: US-BAYER-2011-121490

PATIENT
  Age: 21 Year
  Sex: Female

DRUGS (3)
  1. YASMIN [Suspect]
     Dosage: UNK
     Dates: start: 200312, end: 2005
  2. KEFLEX [Concomitant]
     Dosage: 500 MG, UNK
     Route: 048
  3. ALBUTEROL [Concomitant]

REACTIONS (7)
  - Gallbladder disorder [None]
  - Injury [None]
  - Pain [None]
  - Post cholecystectomy syndrome [None]
  - Anxiety [None]
  - Anhedonia [None]
  - Cholecystitis chronic [None]
